FAERS Safety Report 15219971 (Version 1)
Quarter: 2018Q3

REPORT INFORMATION
  Report Type: Spontaneous
  Country: US (occurrence: US)
  Receive Date: 20180731
  Receipt Date: 20180731
  Transmission Date: 20181010
  Serious: Yes (Congenital Anomaly)
  Sender: FDA-Public Use
  Company Number: US-ALVOGEN-2018-ALVOGEN-096901

PATIENT

DRUGS (1)
  1. NEVIRAPINE. [Suspect]
     Active Substance: NEVIRAPINE
     Indication: PRODUCT USED FOR UNKNOWN INDICATION

REACTIONS (4)
  - Foetal exposure during pregnancy [Unknown]
  - Nose deformity [Unknown]
  - Trisomy 21 [Unknown]
  - Pericardial effusion [Unknown]
